FAERS Safety Report 6227213-0 (Version None)
Quarter: 2009Q2

REPORT INFORMATION
  Report Type: 
  Country: None (occurrence: None)
  Receive Date: 20090612
  Receipt Date: 20090529
  Transmission Date: 20091009
  Serious: No
  Sender: FDA-Public Use
  Company Number: US-ABBOTT-09P-163-0577067-00

PATIENT
  Sex: Female
  Weight: 48.578 kg

DRUGS (7)
  1. HUMIRA [Suspect]
     Indication: CROHN'S DISEASE
     Route: 058
     Dates: start: 20090514, end: 20090514
  2. HUMIRA [Suspect]
     Route: 058
     Dates: start: 20090515, end: 20090515
  3. HUMIRA [Suspect]
     Route: 058
     Dates: start: 20090528, end: 20090528
  4. WELLBUTRIN [Concomitant]
     Indication: DEPRESSION
  5. HYOMAX-SR [Concomitant]
     Indication: GASTROINTESTINAL PAIN
  6. HYOMAX-SR [Concomitant]
     Indication: GASTRIC PH DECREASED
  7. HYOMAX-SR [Concomitant]

REACTIONS (4)
  - INJECTION SITE HAEMATOMA [None]
  - INJECTION SITE HAEMORRHAGE [None]
  - INJECTION SITE NODULE [None]
  - INJECTION SITE PAIN [None]
